FAERS Safety Report 24648230 (Version 1)
Quarter: 2024Q4

REPORT INFORMATION
  Report Type: Spontaneous
  Country: HU (occurrence: HU)
  Receive Date: 20241121
  Receipt Date: 20241121
  Transmission Date: 20250115
  Serious: Yes (Death, Hospitalization, Other)
  Sender: INCYTE
  Company Number: HU-002147023-NVSC2024HU220736

PATIENT

DRUGS (3)
  1. RUXOLITINIB [Suspect]
     Active Substance: RUXOLITINIB
     Indication: Polycythaemia vera
     Dosage: 15 MG, BID
     Route: 065
     Dates: start: 202204
  2. RUXOLITINIB [Suspect]
     Active Substance: RUXOLITINIB
     Dosage: 20 MG, BID
     Route: 065
  3. RUXOLITINIB [Suspect]
     Active Substance: RUXOLITINIB
     Dosage: 10 MG, BID
     Route: 065
     Dates: start: 20240828, end: 2024

REACTIONS (21)
  - Monocyte count increased [Unknown]
  - Chronic respiratory disease [Unknown]
  - Lymphadenopathy [Unknown]
  - Haematocrit decreased [Unknown]
  - Haemoglobin decreased [Unknown]
  - Respiratory failure [Unknown]
  - Myelofibrosis [Fatal]
  - Muscular weakness [Unknown]
  - Drug intolerance [Unknown]
  - Blood lactate dehydrogenase increased [Unknown]
  - Metastases to liver [Unknown]
  - Metastases to spleen [Unknown]
  - Lymphocyte count decreased [Unknown]
  - Hepatic fibrosis [Unknown]
  - Monocyte count decreased [Unknown]
  - Marrow hyperplasia [Fatal]
  - Asthenia [Unknown]
  - Red blood cell count decreased [Unknown]
  - Anaemia [Unknown]
  - Platelet count decreased [Unknown]
  - White blood cell count decreased [Unknown]

NARRATIVE: CASE EVENT DATE: 20221102
